FAERS Safety Report 5926611-X (Version None)
Quarter: 2008Q4

REPORT INFORMATION
  Report Type: 
  Country: None (occurrence: None)
  Receive Date: 20081022
  Receipt Date: 20081017
  Transmission Date: 20090506
  Serious: Yes (Hospitalization)
  Sender: FDA-Public Use
  Company Number: A0753110A

PATIENT
  Age: 57 Year
  Sex: Female
  Weight: 50 kg

DRUGS (2)
  1. PAXIL [Suspect]
     Indication: ANXIETY
     Dosage: 20MG AT NIGHT
     Route: 048
     Dates: start: 19890101
  2. REBIF [Concomitant]
     Indication: MULTIPLE SCLEROSIS
     Route: 065
     Dates: end: 20071201

REACTIONS (4)
  - ANXIETY [None]
  - DEPRESSION [None]
  - INSOMNIA [None]
  - OVERDOSE [None]
